FAERS Safety Report 10247093 (Version 1)
Quarter: 2014Q2

REPORT INFORMATION
  Report Type: Spontaneous
  Country: US (occurrence: None)
  Receive Date: 20140617
  Receipt Date: 20140617
  Transmission Date: 20141212
  Serious: Yes (Hospitalization)
  Sender: FDA-Public Use
  Company Number: None

PATIENT
  Age: 41 Year
  Sex: Female
  Weight: 101 kg

DRUGS (1)
  1. DEPO-PROVERA [Suspect]
     Indication: CONTRACEPTION
     Dosage: 150MG EVERY 3 MONTHS IM
     Route: 030
     Dates: start: 2002, end: 20140506

REACTIONS (4)
  - Headache [None]
  - Dizziness [None]
  - Cerebellar infarction [None]
  - Cerebrovascular accident [None]
